FAERS Safety Report 17772936 (Version 1)
Quarter: 2020Q2

REPORT INFORMATION
  Report Type: Spontaneous
  Country: IL (occurrence: IL)
  Receive Date: 20200512
  Receipt Date: 20200512
  Transmission Date: 20200714
  Serious: Yes (Other)
  Sender: FDA-Public Use
  Company Number: IL-ROCHE-2575018

PATIENT
  Sex: Female

DRUGS (3)
  1. CISPLATIN. [Suspect]
     Active Substance: CISPLATIN
     Indication: TRIPLE NEGATIVE BREAST CANCER
     Route: 065
     Dates: start: 20200201
  2. GEMCITABINE. [Suspect]
     Active Substance: GEMCITABINE
     Indication: TRIPLE NEGATIVE BREAST CANCER
     Route: 065
     Dates: start: 20200201
  3. TECENTRIQ [Suspect]
     Active Substance: ATEZOLIZUMAB
     Indication: TRIPLE NEGATIVE BREAST CANCER
     Route: 065
     Dates: start: 20200201

REACTIONS (3)
  - Tumour pseudoprogression [Unknown]
  - Breast swelling [Unknown]
  - Seroma [Unknown]
